FAERS Safety Report 8564049 (Version 2)
Quarter: 2014Q1

REPORT INFORMATION
  Report Type: Spontaneous
  Country: US (occurrence: US)
  Receive Date: 20120516
  Receipt Date: 20140225
  Transmission Date: 20141002
  Serious: Yes (Other)
  Sender: FDA-Public Use
  Company Number: US-PFIZER INC-2012113984

PATIENT
  Age: 34 Year
  Sex: Female
  Weight: 49.9 kg

DRUGS (4)
  1. PREMARIN [Suspect]
     Indication: HORMONE REPLACEMENT THERAPY
     Dosage: 0.625 MG, 1X/DAY
     Route: 048
     Dates: start: 1970, end: 1970
  2. PREMARIN [Suspect]
     Dosage: 0.625 MG, CYCLIC (AT 0.625MG DAILY FOR 25 DAYS FOLLOWED BY 5 DAYS OFF)
     Route: 048
  3. PREMARIN [Suspect]
     Dosage: 0.625 MG, 1X/DAY
     Route: 048
     Dates: end: 201106
  4. PREDNISONE [Concomitant]
     Indication: SYSTEMIC LUPUS ERYTHEMATOSUS
     Dosage: UNK

REACTIONS (11)
  - Pulmonary embolism [Unknown]
  - Systemic lupus erythematosus [Unknown]
  - Crying [Unknown]
  - Tremor [Unknown]
  - Malaise [Unknown]
  - Feeling abnormal [Unknown]
  - Therapeutic response unexpected [Unknown]
  - Wound [Not Recovered/Not Resolved]
  - Nervousness [Unknown]
  - Bone disorder [Unknown]
  - Body height decreased [Unknown]
